FAERS Safety Report 5788391-0 (Version None)
Quarter: 2008Q2

REPORT INFORMATION
  Report Type: 
  Country: None (occurrence: None)
  Receive Date: 20080625
  Receipt Date: 20080613
  Transmission Date: 20081010
  Serious: Yes (Hospitalization, Other)
  Sender: FDA-Public Use
  Company Number: US-PFIZER INC-2008051267

PATIENT
  Sex: Female

DRUGS (1)
  1. CHANTIX [Suspect]

REACTIONS (10)
  - AMNESIA [None]
  - BRONCHITIS [None]
  - CHRONIC OBSTRUCTIVE PULMONARY DISEASE [None]
  - DISTURBANCE IN ATTENTION [None]
  - DYSPNOEA [None]
  - EMPHYSEMA [None]
  - LUNG DISORDER [None]
  - NERVOUSNESS [None]
  - PHARYNGEAL MASS [None]
  - PYREXIA [None]
